FAERS Safety Report 5457582-0 (Version None)
Quarter: 2007Q3

REPORT INFORMATION
  Report Type: 
  Country: None (occurrence: None)
  Receive Date: 20070918
  Receipt Date: 20070906
  Transmission Date: 20080115
  Serious: No
  Sender: FDA-Public Use
  Company Number: US-BOEHRINGER INGELHEIM PHARMACEUTICALS, INC.-2007-BP-17754BP

PATIENT
  Sex: Female

DRUGS (6)
  1. CATAPRES-TTS-1 [Suspect]
     Indication: HOT FLUSH
     Route: 061
     Dates: start: 20070628, end: 20070717
  2. LIPITOR [Concomitant]
     Indication: BLOOD CHOLESTEROL INCREASED
  3. SIMVASTATIN [Concomitant]
     Indication: BLOOD CHOLESTEROL
  4. SIMVASTATIN [Concomitant]
  5. LISINOPRIL [Concomitant]
     Indication: HYPERTENSION
  6. EFFEXOR [Concomitant]
     Indication: ANXIETY

REACTIONS (5)
  - APPLICATION SITE ERYTHEMA [None]
  - APPLICATION SITE EXFOLIATION [None]
  - APPLICATION SITE IRRITATION [None]
  - APPLICATION SITE REACTION [None]
  - APPLICATION SITE VESICLES [None]
